FAERS Safety Report 7002334-3 (Version None)
Quarter: 2010Q3

REPORT INFORMATION
  Report Type: 
  Country: None (occurrence: None)
  Receive Date: 20100920
  Receipt Date: 20100615
  Transmission Date: 20110219
  Serious: No
  Sender: FDA-Public Use
  Company Number: US-ASTRAZENECA-2010SE30968

PATIENT
  Sex: Female

DRUGS (4)
  1. SEROQUEL [Suspect]
     Indication: BIPOLAR I DISORDER
     Dosage: 100-1200 MG
     Route: 048
     Dates: start: 20040316
  2. TRAZODONE HCL [Concomitant]
     Dates: start: 20031007
  3. LORAZEPAM [Concomitant]
     Dates: start: 20031007
  4. LEXAPRO [Concomitant]
     Dates: start: 20031030

REACTIONS (5)
  - CHOLECYSTECTOMY [None]
  - DIABETES MELLITUS [None]
  - INSOMNIA [None]
  - PNEUMONIA [None]
  - TACHYPHRENIA [None]
